FAERS Safety Report 11473198 (Version 2)
Quarter: 2015Q3

REPORT INFORMATION
  Report Type: Other
  Country: None (occurrence: US)
  Receive Date: 20150904
  Receipt Date: 20150930
  Transmission Date: 20151125
  Serious: Yes (Other)
  Sender: FDA-Public Use
  Company Number: PR15-0008098

PATIENT
  Age: 43 Year
  Sex: Male

DRUGS (1)
  1. BC [Suspect]
     Active Substance: ASPIRIN\CAFFEINE
     Route: 048

REACTIONS (2)
  - Gastric ulcer haemorrhage [Unknown]
  - Haemoglobin decreased [None]
